APPROVED DRUG PRODUCT: VANTRELA ER
Active Ingredient: HYDROCODONE BITARTRATE
Strength: 60MG
Dosage Form/Route: TABLET, EXTENDED RELEASE;ORAL
Application: N207975 | Product #004
Applicant: TEVA BRANDED PHARMACEUTICAL PRODUCTS R AND D INC
Approved: Jan 17, 2017 | RLD: Yes | RS: No | Type: DISCN

PATENTS:
Patent 8445018 | Expires: Jul 31, 2029
Patent 9216176 | Expires: Sep 13, 2027
Patent 9572803 | Expires: Sep 13, 2027